FAERS Safety Report 10183526 (Version 2)
Quarter: 2014Q3

REPORT INFORMATION
  Report Type: Spontaneous
  Country: US (occurrence: US)
  Receive Date: 20140520
  Receipt Date: 20140814
  Transmission Date: 20150326
  Serious: Yes (Other)
  Sender: FDA-Public Use
  Company Number: US-ASTRAZENECA-2014SE32844

PATIENT
  Age: 63 Year
  Sex: Female
  Weight: 112.5 kg

DRUGS (15)
  1. CRESTOR [Suspect]
     Active Substance: ROSUVASTATIN CALCIUM
     Indication: LOW DENSITY LIPOPROTEIN
     Route: 048
     Dates: start: 20101004, end: 20110202
  2. LEVOXXYL [Concomitant]
     Indication: HYPOTHYROIDISM
     Route: 048
  3. SERTRALINE HCL [Concomitant]
     Active Substance: SERTRALINE HYDROCHLORIDE
     Route: 048
  4. OMEGA 3 FATTY ACIDS [Concomitant]
     Active Substance: OMEGA-3 FATTY ACIDS
  5. RED YEAST RICE [Concomitant]
     Active Substance: DIETARY SUPPLEMENT
     Route: 048
     Dates: start: 201404
  6. ASPIRIN. [Concomitant]
     Active Substance: ASPIRIN
     Route: 048
  7. MAGNESIUM [Concomitant]
     Active Substance: MAGNESIUM
     Route: 048
  8. VITAMIN B COMPLEX [Concomitant]
     Active Substance: CYANOCOBALAMIN\DEXPANTHENOL\NIACINAMIDE\PYRIDOXINE HYDROCHLORIDE\RIBOFLAVIN 5^-PHOSPHATE SODIUM\THIAMINE HYDROCHLORIDE\VITAMIN B COMPLEX
     Route: 048
  9. MAGNIESIUM [Concomitant]
     Route: 048
  10. ALBUTEROL. [Concomitant]
     Active Substance: ALBUTEROL
     Dosage: 0.083 % NEBULIZER SOLUTION 1 VIAL BY NEBULIZER EVERY 4 HR PRN AS DIRECTED
  11. NIACIN. [Concomitant]
     Active Substance: NIACIN
     Route: 048
     Dates: start: 201404
  12. CRESTOR [Suspect]
     Active Substance: ROSUVASTATIN CALCIUM
     Indication: LOW DENSITY LIPOPROTEIN
     Route: 048
     Dates: start: 20130718, end: 201404
  13. SERTRALINE HCL [Concomitant]
     Active Substance: SERTRALINE HYDROCHLORIDE
     Route: 048
  14. LORAZEPAM. [Concomitant]
     Active Substance: LORAZEPAM
     Route: 048
  15. PROZAAC [Concomitant]
     Indication: ANXIETY
     Route: 048
     Dates: end: 201401

REACTIONS (13)
  - Myocardial infarction [Unknown]
  - Sleep disorder due to a general medical condition [Recovered/Resolved]
  - Joint injury [Recovering/Resolving]
  - Weight decreased [Unknown]
  - Pain in extremity [Recovered/Resolved]
  - Mobility decreased [Recovered/Resolved]
  - Glycosylated haemoglobin increased [Unknown]
  - Drug hypersensitivity [Unknown]
  - Suicidal ideation [Unknown]
  - Restlessness [Recovered/Resolved]
  - Nightmare [Recovering/Resolving]
  - Blood glucose increased [Unknown]
  - Road traffic accident [Recovered/Resolved]

NARRATIVE: CASE EVENT DATE: 2012
